FAERS Safety Report 7237791-0 (Version None)
Quarter: 2011Q1

REPORT INFORMATION
  Report Type: 
  Country: None (occurrence: None)
  Receive Date: 20110113
  Receipt Date: 20110104
  Transmission Date: 20110831
  Serious: Yes (Hospitalization)
  Sender: FDA-Public Use
  Company Number: 2010US000825

PATIENT
  Age: 63 Year
  Sex: Male
  Weight: 110 kg

DRUGS (3)
  1. AMEVIVE [Suspect]
     Indication: PSORIASIS
     Dosage: 15 MG, WEEKLY, INTRAMUSCULAR
     Route: 030
     Dates: start: 20050324
  2. ELOCON [Concomitant]
  3. DOVOBET (BETAMETHASONE) [Concomitant]

REACTIONS (3)
  - POLLAKIURIA [None]
  - NOCTURIA [None]
  - NEPHROLITHIASIS [None]
